FAERS Safety Report 7315894-X (Version None)
Quarter: 2011Q1

REPORT INFORMATION
  Report Type: 
  Country: None (occurrence: None)
  Receive Date: 20110225
  Receipt Date: 20110215
  Transmission Date: 20110831
  Serious: Yes (Hospitalization)
  Sender: FDA-Public Use
  Company Number: AU-JNJFOC-20110205620

PATIENT
  Sex: Female

DRUGS (5)
  1. METHOTREXATE [Concomitant]
  2. SIMPONI [Suspect]
     Indication: RHEUMATOID ARTHRITIS
     Route: 058
  3. FOLIC ACID [Concomitant]
  4. MERSYNDOL [Concomitant]
     Dosage: WHEN REQUIRED
  5. PANADEINE FORTE [Concomitant]
     Dosage: WHEN REQUIRED

REACTIONS (1)
  - TOOTH INFECTION [None]
